FAERS Safety Report 10712367 (Version 3)
Quarter: 2015Q4

REPORT INFORMATION
  Report Type: Spontaneous
  Country: CA (occurrence: CA)
  Receive Date: 20150115
  Receipt Date: 20151126
  Transmission Date: 20160304
  Serious: Yes (Hospitalization)
  Sender: FDA-Public Use
  Company Number: CA-ROCHE-1502302

PATIENT
  Age: 66 Year
  Sex: Male

DRUGS (10)
  1. CITALOPRAM [Concomitant]
     Active Substance: CITALOPRAM HYDROBROMIDE
  2. ASAPHEN [Concomitant]
     Active Substance: ASPIRIN
  3. ZENHALE [Concomitant]
     Active Substance: FORMOTEROL FUMARATE\MOMETASONE FUROATE
  4. SPIRIVA [Concomitant]
     Active Substance: TIOTROPIUM BROMIDE MONOHYDRATE
  5. BRICANYL [Concomitant]
     Active Substance: TERBUTALINE SULFATE
  6. PANTOPRAZOLE [Concomitant]
     Active Substance: PANTOPRAZOLE SODIUM
  7. AVELOX [Concomitant]
     Active Substance: MOXIFLOXACIN HYDROCHLORIDE
  8. MONTELUKAST [Concomitant]
     Active Substance: MONTELUKAST SODIUM
  9. ALVESCO [Concomitant]
     Active Substance: CICLESONIDE
  10. XOLAIR [Suspect]
     Active Substance: OMALIZUMAB
     Indication: ASTHMA
     Route: 058
     Dates: start: 20140327

REACTIONS (6)
  - Pneumonia [Recovered/Resolved]
  - Back pain [Unknown]
  - Bronchospasm [Unknown]
  - Lung infection [Unknown]
  - Movement disorder [Unknown]
  - Respiration abnormal [Unknown]

NARRATIVE: CASE EVENT DATE: 201411
